FAERS Safety Report 5372067-8 (Version None)
Quarter: 2007Q2

REPORT INFORMATION
  Report Type: 
  Country: None (occurrence: None)
  Receive Date: 20070625
  Receipt Date: 20070614
  Transmission Date: 20071010
  Serious: Yes (Life-Threatening)
  Sender: FDA-Public Use
  Company Number: 16817

PATIENT
  Age: 61 Year
  Sex: Female

DRUGS (8)
  1. PACLITAXEL [Suspect]
     Indication: UTERINE CANCER
     Dosage: 294 MG FREQ IV
     Route: 042
     Dates: start: 20070522, end: 20070522
  2. PULMICORT MFR. NOT SPECIFIED [Concomitant]
  3. BRICANYL [Concomitant]
  4. RETAFYLLIN [Concomitant]
  5. SEREVENT MFR: NOT SPECIFIED [Concomitant]
  6. PANADOL /00020001/ MFR: NOT SPECIFIED [Concomitant]
  7. OXANEST [Concomitant]
  8. KLEXANE /00889602/ [Concomitant]

REACTIONS (2)
  - OBSTRUCTION [None]
  - PHARYNGEAL OEDEMA [None]
